FAERS Safety Report 4643022-8 (Version None)
Quarter: 2005Q2

REPORT INFORMATION
  Report Type: 
  Country: None (occurrence: None)
  Receive Date: 20050422
  Receipt Date: 20050405
  Transmission Date: 20051028
  Serious: Yes (Hospitalization, Other)
  Sender: FDA-Public Use
  Company Number: 17675

PATIENT
  Age: 52 Year
  Sex: Female
  Weight: 92.5338 kg

DRUGS (1)
  1. ADRIAMYCIN PFS [Suspect]
     Indication: ANAEMIA OF MALIGNANT DISEASE
     Dosage: 64 MG
     Dates: start: 20050124, end: 20050127

REACTIONS (3)
  - DEHYDRATION [None]
  - DIARRHOEA [None]
  - DRUG INTERACTION [None]
